FAERS Safety Report 9722346 (Version 1)
Quarter: 2013Q4

REPORT INFORMATION
  Report Type: Report from Study
  Country: LB (occurrence: LB)
  Receive Date: 20131202
  Receipt Date: 20131202
  Transmission Date: 20140711
  Serious: Yes (Disabling)
  Sender: FDA-Public Use
  Company Number: LB-SA-2013SA122071

PATIENT
  Sex: Female

DRUGS (6)
  1. LANTUS SOLOSTAR [Suspect]
     Indication: PRODUCT USED FOR UNKNOWN INDICATION
     Dosage: DOSE:18 UNIT(S)
     Route: 058
  2. SOLOSTAR [Concomitant]
     Indication: DEVICE THERAPY
     Route: 058
  3. GLUCOPHAGE [Concomitant]
  4. MICARDIS [Concomitant]
  5. LESCOL [Concomitant]
  6. ASPICOT [Concomitant]

REACTIONS (1)
  - Tendonitis [Not Recovered/Not Resolved]
